FAERS Safety Report 15441862 (Version 1)
Quarter: 2018Q3

REPORT INFORMATION
  Report Type: Report from Study
  Country: US (occurrence: US)
  Receive Date: 20180928
  Receipt Date: 20180928
  Transmission Date: 20181010
  Serious: No
  Sender: FDA-Public Use
  Company Number: US-AMGEN-USASL2018049734

PATIENT
  Age: 70 Year
  Sex: Female

DRUGS (7)
  1. CALCIUM 600 + D [Concomitant]
     Active Substance: CALCIUM\VITAMIN D
     Dosage: 600 MG, UNK
  2. ZOLOFT [Concomitant]
     Active Substance: SERTRALINE HYDROCHLORIDE
     Dosage: UNK
     Dates: start: 201804
  3. PRAVASTINE [Concomitant]
     Indication: BLOOD CHOLESTEROL INCREASED
     Dosage: UNK
     Dates: start: 2003
  4. LEXAPRO [Concomitant]
     Active Substance: ESCITALOPRAM OXALATE
     Indication: MENTAL DISORDER
     Dosage: UNK
     Dates: start: 2008, end: 201804
  5. VITAMIN C [Concomitant]
     Active Substance: ASCORBIC ACID
  6. CRANBERRY EXTRACT [Concomitant]
     Active Substance: CRANBERRY JUICE
  7. PROLIA [Suspect]
     Active Substance: DENOSUMAB
     Indication: OSTEOPOROSIS POSTMENOPAUSAL
     Dosage: UNK UNK, UNK
     Route: 065
     Dates: start: 2014

REACTIONS (7)
  - Sinus disorder [Unknown]
  - Arthralgia [Not Recovered/Not Resolved]
  - Tooth disorder [Unknown]
  - Headache [Unknown]
  - Facial pain [Not Recovered/Not Resolved]
  - Arthropathy [Not Recovered/Not Resolved]
  - Fear [Unknown]
